FAERS Safety Report 25049767 (Version 1)
Quarter: 2025Q1

REPORT INFORMATION
  Report Type: Spontaneous
  Country: US (occurrence: None)
  Receive Date: 20250306
  Receipt Date: 20250306
  Transmission Date: 20250409
  Serious: No
  Sender: FDA-CTU
  Company Number: None

PATIENT
  Age: 44 Year
  Sex: Female

DRUGS (1)
  1. VTAMA [Suspect]
     Active Substance: TAPINAROF
     Indication: Rheumatoid arthritis
     Dosage: APPLY A THIN LAYER TO AFFECTED AREA(S) ONCE DAILY AS DIRECTED  (ARMS AXILLAS ELOBOW
     Route: 061
     Dates: start: 202410

REACTIONS (1)
  - COVID-19 [None]
